FAERS Safety Report 6978711-3 (Version None)
Quarter: 2010Q3

REPORT INFORMATION
  Report Type: 
  Country: None (occurrence: None)
  Receive Date: 20100913
  Receipt Date: 20100901
  Transmission Date: 20110219
  Serious: Yes (Other)
  Sender: FDA-Public Use
  Company Number: B0668627A

PATIENT
  Age: 28 Year
  Sex: Female

DRUGS (2)
  1. PRIORIX [Suspect]
     Indication: PROPHYLAXIS
     Dosage: 1INJ SINGLE DOSE
     Route: 030
     Dates: start: 20100325, end: 20100325
  2. MALARONE [Suspect]
     Route: 065
     Dates: start: 20100407, end: 20100422

REACTIONS (2)
  - ABORTION SPONTANEOUS [None]
  - DRUG EXPOSURE DURING PREGNANCY [None]
